FAERS Safety Report 6987131-7 (Version None)
Quarter: 2010Q3

REPORT INFORMATION
  Report Type: 
  Country: None (occurrence: None)
  Receive Date: 20100913
  Receipt Date: 20100902
  Transmission Date: 20110219
  Serious: Yes (Disabling)
  Sender: FDA-Public Use
  Company Number: 2010EU004575

PATIENT
  Age: 52 Year
  Sex: Male

DRUGS (2)
  1. PROGRAF [Suspect]
     Indication: LUNG TRANSPLANT
     Dosage: 3.5 MG, UID/QD, ORAL
     Route: 048
     Dates: start: 20100225
  2. MYCOPHENOLATE MOFETIL [Suspect]

REACTIONS (2)
  - FORCED EXPIRATORY VOLUME DECREASED [None]
  - NEUTROPHILIA [None]
